FAERS Safety Report 24538507 (Version 2)
Quarter: 2024Q4

REPORT INFORMATION
  Report Type: Spontaneous
  Country: CN (occurrence: CN)
  Receive Date: 20241023
  Receipt Date: 20241107
  Transmission Date: 20250115
  Serious: Yes (Other)
  Sender: AUROBINDO
  Company Number: CN-AUROBINDO-AUR-APL-2024-051720

PATIENT
  Age: 26 Year
  Sex: Female

DRUGS (8)
  1. AMLODIPINE BESYLATE [Suspect]
     Active Substance: AMLODIPINE BESYLATE
     Indication: Product used for unknown indication
     Dosage: 5 MILLIGRAM (TOTAL 1080 MG)
     Route: 065
  2. AMLODIPINE BESYLATE [Suspect]
     Active Substance: AMLODIPINE BESYLATE
     Dosage: 216 TABLETS WITHIN 2 HOURS AFTER A MEAL,
     Route: 065
  3. NOREPINEPHRINE [Concomitant]
     Active Substance: NOREPINEPHRINE\NOREPINEPHRINE BITARTRATE
     Indication: Product used for unknown indication
     Dosage: 1.8 ?G?KG-1?MIN-1
     Route: 042
  4. DOPAMINE [Concomitant]
     Active Substance: DOPAMINE HYDROCHLORIDE
     Indication: Product used for unknown indication
     Dosage: 17 ?G ?KG-1?MIN-1
     Route: 042
  5. METARAMINOL [Concomitant]
     Active Substance: METARAMINOL
     Indication: Product used for unknown indication
     Dosage: 19 MG?H-1
     Route: 042
  6. ALBUMIN HUMAN [Concomitant]
     Active Substance: ALBUMIN HUMAN
     Indication: Product used for unknown indication
     Dosage: TO SUPPLEMENT THE COLLOID OSMOTIC PRESSURE
     Route: 065
  7. IMIPENEM AND CILASTATIN [Concomitant]
     Active Substance: CILASTATIN SODIUM\IMIPENEM
     Indication: Infection prophylaxis
     Dosage: UNK
     Route: 065
  8. CALCIUM GLUCONATE [Concomitant]
     Active Substance: CALCIUM GLUCONATE
     Indication: Product used for unknown indication
     Dosage: UNK
     Route: 065

REACTIONS (14)
  - Renal impairment [Recovered/Resolved]
  - Multiple organ dysfunction syndrome [Recovered/Resolved]
  - Shock [Recovered/Resolved]
  - Pulmonary oedema [Recovered/Resolved]
  - Cardio-respiratory arrest [Recovered/Resolved]
  - Vitiligo [Unknown]
  - Electrolyte imbalance [Unknown]
  - Acute respiratory distress syndrome [Unknown]
  - Acute kidney injury [Unknown]
  - Pancreatitis [Unknown]
  - Pneumonia [Unknown]
  - Gastrointestinal injury [Recovered/Resolved]
  - Overdose [Recovered/Resolved]
  - Treatment delayed [Recovered/Resolved]
